FAERS Safety Report 25047076 (Version 1)
Quarter: 2025Q1

REPORT INFORMATION
  Report Type: Report from Study
  Country: JP (occurrence: JP)
  Receive Date: 20250306
  Receipt Date: 20250306
  Transmission Date: 20250408
  Serious: Yes (Death)
  Sender: SHIONOGI
  Company Number: JP-shionogi-202500002489

PATIENT
  Sex: Male

DRUGS (1)
  1. CEFIDEROCOL [Suspect]
     Active Substance: CEFIDEROCOL
     Indication: Product used for unknown indication
     Route: 041
     Dates: start: 20241128

REACTIONS (1)
  - Death [Fatal]
